FAERS Safety Report 6972822-4 (Version None)
Quarter: 2010Q3

REPORT INFORMATION
  Report Type: 
  Country: None (occurrence: None)
  Receive Date: 20100909
  Receipt Date: 20100827
  Transmission Date: 20110219
  Serious: No
  Sender: FDA-Public Use
  Company Number: AU-ELI_LILLY_AND_COMPANY-AU201008007763

PATIENT
  Age: 30 Year
  Sex: Female

DRUGS (5)
  1. ZYPREXA [Suspect]
     Dosage: 10 MG, DAILY (1/D)
     Route: 065
  2. ZYPREXA [Suspect]
     Dosage: 5 MG, OTHER (ON AND OFF)
     Route: 065
  3. VALPROATE SODIUM [Concomitant]
  4. SEROQUEL [Concomitant]
  5. VITAMIN D [Concomitant]

REACTIONS (1)
  - EPISTAXIS [None]
